FAERS Safety Report 5009533-0 (Version None)
Quarter: 2006Q2

REPORT INFORMATION
  Report Type: 
  Country: None (occurrence: None)
  Receive Date: 20060522
  Receipt Date: 20060516
  Transmission Date: 20061013
  Serious: Yes (Life-Threatening)
  Sender: FDA-Public Use
  Company Number: 2006059725

PATIENT
  Age: 64 Year
  Sex: Female
  Weight: 92.7 kg

DRUGS (4)
  1. EXEMESTANE [Suspect]
     Indication: BREAST CANCER
     Dosage: 25 MG (25 MG, DAILY), ORAL
     Route: 048
     Dates: start: 20050619
  2. PRILOSEC [Concomitant]
  3. GAS-X (SIMETICONE) [Concomitant]
  4. HYDROCORTISONE [Concomitant]

REACTIONS (7)
  - ARTHRALGIA [None]
  - ASTHENIA [None]
  - CEREBRAL ISCHAEMIA [None]
  - CEREBROVASCULAR ACCIDENT [None]
  - HEADACHE [None]
  - LACUNAR INFARCTION [None]
  - MUSCLE TWITCHING [None]
